FAERS Safety Report 6038376-4 (Version None)
Quarter: 2009Q1

REPORT INFORMATION
  Report Type: 
  Country: None (occurrence: None)
  Receive Date: 20090113
  Receipt Date: 20090113
  Transmission Date: 20090719
  Serious: No
  Sender: FDA-Public Use
  Company Number: None

PATIENT
  Age: 62 Year
  Sex: Female
  Weight: 57.1532 kg

DRUGS (1)
  1. RECLAST [Suspect]
     Indication: OSTEOPOROSIS
     Dates: start: 20071127, end: 20081227

REACTIONS (6)
  - ECONOMIC PROBLEM [None]
  - FACIAL PAIN [None]
  - IMPAIRED HEALING [None]
  - PAIN IN JAW [None]
  - STOMATITIS [None]
  - TOOTH EXTRACTION [None]
